FAERS Safety Report 10228664 (Version 1)
Quarter: 2014Q2

REPORT INFORMATION
  Report Type: Spontaneous
  Country: US (occurrence: US)
  Receive Date: 20140610
  Receipt Date: 20140610
  Transmission Date: 20141212
  Serious: Yes (Other)
  Sender: FDA-Public Use
  Company Number: US-BAXTER-2014BAX028765

PATIENT
  Age: 45 Year
  Sex: Female

DRUGS (4)
  1. GAMMAGARD LIQUID [Suspect]
     Indication: GUILLAIN-BARRE SYNDROME
     Route: 042
  2. CYCLOPHOSPHAMIDE FOR INJECTION, USP [Suspect]
     Indication: GUILLAIN-BARRE SYNDROME
     Route: 065
  3. PREDNISONE [Suspect]
     Indication: GUILLAIN-BARRE SYNDROME
     Route: 065
  4. PLEX [Suspect]
     Indication: GUILLAIN-BARRE SYNDROME
     Route: 065

REACTIONS (1)
  - POEMS syndrome [Recovered/Resolved]
